FAERS Safety Report 4276768-4 (Version None)
Quarter: 2004Q1

REPORT INFORMATION
  Report Type: 
  Country: None (occurrence: None)
  Receive Date: 20040120
  Receipt Date: 20040107
  Transmission Date: 20041129
  Serious: No
  Sender: FDA-Public Use
  Company Number: 04P-144-0246661-00

PATIENT
  Age: 48 Year
  Sex: Male

DRUGS (2)
  1. BIAXIN [Suspect]
     Indication: PHARYNGITIS
     Dosage: 500 MG, 2 IN 1 D, PER ORAL
     Route: 048
  2. BIAXIN [Suspect]
     Indication: TONSILLITIS
     Dosage: 500 MG, 2 IN 1 D, PER ORAL
     Route: 048

REACTIONS (6)
  - BLOOD PRESSURE INCREASED [None]
  - BODY TEMPERATURE DECREASED [None]
  - CARDIOMEGALY [None]
  - HENOCH-SCHONLEIN PURPURA [None]
  - OEDEMA PERIPHERAL [None]
  - PULMONARY CONGESTION [None]
